FAERS Safety Report 17287453 (Version 1)
Quarter: 2020Q1

REPORT INFORMATION
  Report Type: Spontaneous
  Country: CA (occurrence: CA)
  Receive Date: 20200120
  Receipt Date: 20200120
  Transmission Date: 20200409
  Serious: Yes (Hospitalization, Other)
  Sender: FDA-Public Use
  Company Number: CA-TEVA-2020-CA-1169706

PATIENT
  Age: 65 Year
  Sex: Female

DRUGS (1)
  1. SALBUTAMOL [Suspect]
     Active Substance: ALBUTEROL
     Indication: PRODUCT USED FOR UNKNOWN INDICATION
     Route: 065

REACTIONS (13)
  - Chills [Unknown]
  - Cold sweat [Unknown]
  - Abdominal adhesions [Unknown]
  - Cortisol decreased [Unknown]
  - Type 2 diabetes mellitus [Unknown]
  - Postoperative ileus [Unknown]
  - Sleep apnoea syndrome [Unknown]
  - Large intestine polyp [Unknown]
  - Pericarditis [Unknown]
  - Anaemia [Unknown]
  - Gastric ulcer [Unknown]
  - Hypothyroidism [Unknown]
  - Pulmonary oedema [Unknown]
